FAERS Safety Report 8301057-8 (Version None)
Quarter: 2012Q2

REPORT INFORMATION
  Report Type: 
  Country: None (occurrence: None)
  Receive Date: 20120420
  Receipt Date: 20120412
  Transmission Date: 20120825
  Serious: Yes (Hospitalization, Other)
  Sender: FDA-Public Use
  Company Number: DE-JNJFOC-20120407912

PATIENT
  Sex: Female
  Weight: 59 kg

DRUGS (10)
  1. ENALAPRIL MALEATE [Concomitant]
     Indication: CARDIAC FAILURE
  2. RIVAROXABAN [Suspect]
     Indication: ATRIAL FIBRILLATION
     Route: 048
     Dates: start: 20120301, end: 20120408
  3. TORSEMIDE [Concomitant]
     Indication: CARDIAC FAILURE
  4. MARCUMAR [Concomitant]
     Indication: ANTICOAGULANT THERAPY
     Dates: start: 20120201, end: 20120201
  5. HYDROCHLOROTHIAZIDE [Concomitant]
     Indication: CARDIAC FAILURE
  6. BISOPROLOL FUMARATE [Concomitant]
     Indication: HYPERTENSION
  7. BISOPROLOL FUMARATE [Concomitant]
     Indication: CARDIAC FAILURE
  8. HYDROCHLOROTHIAZIDE [Concomitant]
     Indication: HYPERTENSION
  9. TORSEMIDE [Concomitant]
     Indication: HYPERTENSION
  10. ENALAPRIL MALEATE [Concomitant]
     Indication: HYPERTENSION

REACTIONS (4)
  - GASTRIC ULCER [None]
  - FALL [None]
  - MELAENA [None]
  - GASTRIC ULCER HAEMORRHAGE [None]
